FAERS Safety Report 8910380 (Version 1)
Quarter: 2012Q4

REPORT INFORMATION
  Report Type: 
  Country: US (occurrence: US)
  Receive Date: 20121115
  Receipt Date: 20121115
  Transmission Date: 20130627
  Serious: No
  Sender: FDA-Public Use
  Company Number: US-BAYER-2012-117072

PATIENT
  Age: 42 Year
  Sex: Male

DRUGS (1)
  1. GADAVIST [Suspect]
     Indication: MRI
     Dosage: 10 ml, ONCE
     Dates: start: 20121106, end: 20121106

REACTIONS (2)
  - Vessel puncture site reaction [None]
  - Urticaria [None]
